FAERS Safety Report 9323999 (Version 4)
Quarter: 2013Q3

REPORT INFORMATION
  Report Type: Spontaneous
  Country: US (occurrence: US)
  Receive Date: 20130603
  Receipt Date: 20130815
  Transmission Date: 20140515
  Serious: Yes (Other)
  Sender: FDA-Public Use
  Company Number: US-PFIZER INC-2013166155

PATIENT
  Age: 41 Year
  Sex: Female
  Weight: 77.1 kg

DRUGS (7)
  1. LYRICA [Suspect]
     Indication: DIABETIC NEUROPATHY
     Dosage: 25 MG, 3X/DAY
     Route: 048
     Dates: start: 2013, end: 2013
  2. LYRICA [Suspect]
     Dosage: 50 MG, 3X/DAY
     Route: 048
     Dates: start: 2013, end: 2013
  3. LYRICA [Suspect]
     Dosage: 75 MG, 3X/DAY
     Route: 048
     Dates: start: 2013, end: 2013
  4. LYRICA [Suspect]
     Dosage: 150 MG, 2X/DAY
     Route: 048
     Dates: start: 2013
  5. LYRICA [Suspect]
     Dosage: UNK,3X/DAY
     Route: 048
  6. CYMBALTA [Concomitant]
     Dosage: UNK
  7. INSULIN [Concomitant]
     Dosage: UNK

REACTIONS (1)
  - Tendonitis [Recovering/Resolving]
